FAERS Safety Report 5772186-8 (Version None)
Quarter: 2008Q2

REPORT INFORMATION
  Report Type: 
  Country: None (occurrence: None)
  Receive Date: 20080610
  Receipt Date: 20080527
  Transmission Date: 20081010
  Serious: Yes (Other)
  Sender: FDA-Public Use
  Company Number: PAR_02220_2008

PATIENT
  Sex: Male
  Weight: 90.7194 kg

DRUGS (4)
  1. IBUROFEN [Suspect]
     Indication: ARTHRITIS
     Dosage: DF ORAL
     Route: 048
  2. ALEVE [Suspect]
     Indication: ARTHRITIS
     Dosage: DF ORAL, DF ORAL, DF ORAL
     Route: 048
  3. ALEVE [Suspect]
  4. ALEVE [Suspect]

REACTIONS (1)
  - RECTAL HAEMORRHAGE [None]
